FAERS Safety Report 6133353-7 (Version None)
Quarter: 2009Q1

REPORT INFORMATION
  Report Type: 
  Country: None (occurrence: None)
  Receive Date: 20090326
  Receipt Date: 20090310
  Transmission Date: 20090719
  Serious: Yes (Life-Threatening, Hospitalization, Other)
  Sender: FDA-Public Use
  Company Number: DE-PFIZER INC-2005125858

PATIENT

DRUGS (7)
  1. LYRICA [Suspect]
     Indication: POLYNEUROPATHY
     Route: 048
     Dates: start: 20050701, end: 20050725
  2. LYRICA [Suspect]
     Indication: NEUROPATHY PERIPHERAL
  3. SORTIS [Concomitant]
     Route: 048
  4. ISCOVER [Concomitant]
     Route: 048
  5. ASPIRIN [Concomitant]
     Route: 048
  6. DELIX [Concomitant]
     Route: 048
  7. BELOC-ZOK MITE [Concomitant]
     Route: 048

REACTIONS (8)
  - CARDIAC ARREST [None]
  - CORONARY ARTERY STENOSIS [None]
  - FATIGUE [None]
  - PNEUMONIA ASPIRATION [None]
  - PSYCHOTIC DISORDER [None]
  - SLEEP DISORDER [None]
  - SWELLING [None]
  - VENTRICULAR FIBRILLATION [None]
